FAERS Safety Report 19204008 (Version 1)
Quarter: 2021Q2

REPORT INFORMATION
  Report Type: Spontaneous
  Country: US (occurrence: US)
  Receive Date: 20210503
  Receipt Date: 20210503
  Transmission Date: 20210717
  Serious: Yes (Life-Threatening, Other)
  Sender: FDA-Public Use
  Company Number: US-CIPLA LTD.-2021US03197

PATIENT

DRUGS (1)
  1. WARFARIN [Suspect]
     Active Substance: WARFARIN
     Indication: ANTICOAGULANT THERAPY
     Dosage: UNK
     Route: 065

REACTIONS (6)
  - Prosthetic cardiac valve thrombosis [Recovered/Resolved]
  - Intentional dose omission [Unknown]
  - Thrombosis [Recovered/Resolved]
  - Anticoagulation drug level below therapeutic [Unknown]
  - Mitral valve stenosis [Recovered/Resolved]
  - Cardiogenic shock [Unknown]
